FAERS Safety Report 9867531 (Version 2)
Quarter: 2014Q1

REPORT INFORMATION
  Report Type: Spontaneous
  Country: US (occurrence: US)
  Receive Date: 20140204
  Receipt Date: 20140204
  Transmission Date: 20141002
  Serious: Yes (Hospitalization, Other)
  Sender: FDA-Public Use
  Company Number: US-ASTRAZENECA-2011SE66194

PATIENT
  Age: 71 Year
  Sex: Female
  Weight: 86.2 kg

DRUGS (19)
  1. NEXIUM [Suspect]
     Indication: GASTROOESOPHAGEAL REFLUX DISEASE
     Route: 048
     Dates: end: 201401
  2. NEXIUM [Suspect]
     Indication: HIATUS HERNIA
     Route: 048
     Dates: end: 201401
  3. METOPROLOL SUCCINATE [Suspect]
     Route: 048
  4. LOVAZA [Concomitant]
     Dosage: TID
  5. LOVAZA [Concomitant]
  6. NIASPAN [Concomitant]
  7. TEKTURNA [Concomitant]
  8. TEKTURNA [Concomitant]
  9. METFORMIN [Concomitant]
  10. GLIPIZIDE [Concomitant]
     Indication: BLOOD GLUCOSE INCREASED
  11. SPIRONOLACTONE [Concomitant]
  12. ENALAPRIL [Concomitant]
     Dosage: 10 M DAILY
  13. SIMVASTATIN [Concomitant]
  14. SIMVASTATIN [Concomitant]
     Dosage: ZOCOR, 40 MG DAILY
  15. ASPIRIN [Concomitant]
  16. LORATIDINE [Concomitant]
     Indication: MULTIPLE ALLERGIES
  17. METOPROLOL [Concomitant]
  18. GABAPENTIN [Concomitant]
     Indication: BACK PAIN
  19. HYDROCODONE [Concomitant]
     Dosage: 5-325 MG

REACTIONS (9)
  - Spinal column stenosis [Unknown]
  - Intervertebral disc degeneration [Unknown]
  - Lower limb fracture [Unknown]
  - Meniscus injury [Unknown]
  - Myocardial infarction [Unknown]
  - Sleep apnoea syndrome [Unknown]
  - Carpal tunnel syndrome [Unknown]
  - Drug dose omission [Unknown]
  - Off label use [Unknown]
